FAERS Safety Report 25179324 (Version 1)
Quarter: 2025Q2

REPORT INFORMATION
  Report Type: Spontaneous
  Country: US (occurrence: US)
  Receive Date: 20250409
  Receipt Date: 20250409
  Transmission Date: 20250717
  Serious: Yes (Hospitalization, Other)
  Sender: SANOFI AVENTIS
  Company Number: US-COSETTE-CP2025US000354

PATIENT
  Age: 58 Year
  Sex: Female
  Weight: 115.1 kg

DRUGS (7)
  1. AMBIEN [Suspect]
     Active Substance: ZOLPIDEM TARTRATE
     Indication: Product used for unknown indication
     Route: 048
     Dates: start: 20240702
  2. LORAZEPAM [Suspect]
     Active Substance: LORAZEPAM
     Indication: Product used for unknown indication
     Route: 048
     Dates: start: 20240702
  3. ELRANATAMAB [Suspect]
     Active Substance: ELRANATAMAB
     Indication: Plasma cell myeloma
     Dosage: 4 MG 1 DOSE EVERY 1 DAY
     Route: 058
     Dates: start: 20220207, end: 20220207
  4. ELRANATAMAB [Suspect]
     Active Substance: ELRANATAMAB
     Route: 058
     Dates: start: 20220214, end: 20220614
  5. ELRANATAMAB [Suspect]
     Active Substance: ELRANATAMAB
     Dosage: 8 MG 1 DOSE EVERY 1 DAY
     Route: 058
     Dates: start: 20220210, end: 20220210
  6. NIROGACESTAT [Suspect]
     Active Substance: NIROGACESTAT
     Indication: Plasma cell myeloma
     Dosage: 100 MG 1 DOSE EVERY 1 DAY
     Route: 048
     Dates: start: 20220314, end: 20220314
  7. NIROGACESTAT [Suspect]
     Active Substance: NIROGACESTAT
     Route: 048
     Dates: start: 20220214, end: 20220220

REACTIONS (3)
  - Toxic encephalopathy [Recovered/Resolved]
  - Lethargy [Recovered/Resolved]
  - Accidental overdose [Unknown]

NARRATIVE: CASE EVENT DATE: 20241123
